FAERS Safety Report 21077362 (Version 2)
Quarter: 2022Q3

REPORT INFORMATION
  Report Type: Spontaneous
  Country: US (occurrence: None)
  Receive Date: 20220713
  Receipt Date: 20220812
  Transmission Date: 20221027
  Serious: No
  Sender: FDA-Public Use
  Company Number: 2022A252753

PATIENT
  Sex: Female
  Weight: 57.2 kg

DRUGS (1)
  1. BUDESONIDE\FORMOTEROL\GLYCOPYRRONIUM [Suspect]
     Active Substance: BUDESONIDE\FORMOTEROL\GLYCOPYRRONIUM
     Indication: Chronic obstructive pulmonary disease
     Dosage: 160MCG/9MCG/4.8MCG, 120INHALATION INHALER, 2 PUFFS TWICE DAILY
     Route: 055

REACTIONS (3)
  - Visual impairment [Unknown]
  - Product use complaint [Unknown]
  - Device malfunction [Unknown]
